FAERS Safety Report 21623509 (Version 1)
Quarter: 2022Q4

REPORT INFORMATION
  Report Type: Spontaneous
  Country: US (occurrence: US)
  Receive Date: 20221121
  Receipt Date: 20221121
  Transmission Date: 20230112
  Serious: Yes (Hospitalization, Other)
  Sender: FDA-Public Use
  Company Number: US-PFIZER INC-202201313323

PATIENT
  Age: 90 Year
  Sex: Male
  Weight: 78.02 kg

DRUGS (1)
  1. VYNDAMAX [Suspect]
     Active Substance: TAFAMIDIS
     Indication: Cardiac amyloidosis
     Dosage: 61 MG, 1X/DAY
     Route: 048
     Dates: start: 2021

REACTIONS (6)
  - Pulmonary embolism [Recovering/Resolving]
  - Malaise [Unknown]
  - Deep vein thrombosis [Unknown]
  - Bedridden [Unknown]
  - Disorientation [Unknown]
  - Body height decreased [Unknown]

NARRATIVE: CASE EVENT DATE: 20221101
